FAERS Safety Report 23759014 (Version 1)
Quarter: 2024Q2

REPORT INFORMATION
  Report Type: Other
  Country: US (occurrence: None)
  Receive Date: 20240418
  Receipt Date: 20240418
  Transmission Date: 20240716
  Serious: No
  Sender: FDA-Public Use
  Company Number: US-ROCHE-3293697

PATIENT
  Age: 33 Year
  Sex: Male

DRUGS (4)
  1. ADO-TRASTUZUMAB EMTANSINE [Suspect]
     Active Substance: ADO-TRASTUZUMAB EMTANSINE
     Indication: Lung adenocarcinoma stage IV
     Route: 065
  2. CISPLATIN [Concomitant]
     Active Substance: CISPLATIN
  3. PEMETREXED [Concomitant]
     Active Substance: PEMETREXED
  4. FAM-TRASTUZUMAB DERUXTECAN-NXKI [Concomitant]
     Active Substance: FAM-TRASTUZUMAB DERUXTECAN-NXKI
     Dosage: SEVEN CYCLES

REACTIONS (1)
  - Disease progression [Unknown]
